FAERS Safety Report 10008695 (Version 1)
Quarter: 2014Q1

REPORT INFORMATION
  Report Type: Spontaneous
  Country: US (occurrence: US)
  Receive Date: 20140312
  Receipt Date: 20140312
  Transmission Date: 20141002
  Serious: No
  Sender: FDA-Public Use
  Company Number: US-INCYTE CORPORATION-2012IN000437

PATIENT
  Age: 74 Year
  Sex: Female

DRUGS (7)
  1. JAKAFI [Suspect]
     Indication: MYELOFIBROSIS
     Dosage: 15 MG, BID
     Route: 048
     Dates: start: 20120220
  2. POTASSIUM [Concomitant]
     Dosage: 20 MEQ, 2 TABS, QD
  3. LASIX [Concomitant]
     Dosage: 40 MG, QD
     Route: 048
  4. COREG [Concomitant]
     Dosage: 25 MG, BID
     Route: 048
  5. ALLOPURINOL [Concomitant]
     Dosage: 300 MG, QD
     Route: 048
  6. CLONIDIN [Concomitant]
     Dosage: UNK, BID
     Route: 048
  7. INSULIN [Concomitant]
     Dosage: UNK

REACTIONS (3)
  - Confusional state [Unknown]
  - Arthralgia [Unknown]
  - Accidental overdose [Recovered/Resolved]
